FAERS Safety Report 4796477-2 (Version None)
Quarter: 2005Q4

REPORT INFORMATION
  Report Type: 
  Country: None (occurrence: None)
  Receive Date: 20051011
  Receipt Date: 20050718
  Transmission Date: 20060501
  Serious: Yes (Hospitalization, Other)
  Sender: FDA-Public Use
  Company Number: 2005-07-1323

PATIENT
  Age: 48 Year
  Sex: Male
  Weight: 74.3899 kg

DRUGS (11)
  1. TEMODAR [Suspect]
     Indication: OLIGODENDROGLIOMA
     Dosage: 370 MG QDX5D ORAL
     Route: 048
     Dates: start: 20000301, end: 20010514
  2. PHENOBARBITAL TAB [Concomitant]
  3. LAMICTAL [Concomitant]
  4. CELEBREX [Concomitant]
  5. KEPPRA [Concomitant]
  6. DECADRON [Concomitant]
  7. CYTOXAN [Concomitant]
  8. ETOPOSIDE [Concomitant]
  9. ETOPOSIDE [Concomitant]
  10. BACTRIM [Concomitant]
  11. THALIDOMIDE [Concomitant]

REACTIONS (6)
  - CONVULSION [None]
  - DISEASE PROGRESSION [None]
  - FLUID RETENTION [None]
  - INFECTION [None]
  - SOMNOLENCE [None]
  - VOMITING [None]
